FAERS Safety Report 7344485-X (Version None)
Quarter: 2011Q1

REPORT INFORMATION
  Report Type: 
  Country: None (occurrence: None)
  Receive Date: 20110310
  Receipt Date: 20110218
  Transmission Date: 20110831
  Serious: Yes (Hospitalization)
  Sender: FDA-Public Use
  Company Number: US-BAYER-201024967NA

PATIENT
  Sex: Female
  Weight: 61.224 kg

DRUGS (13)
  1. CELEXA [Concomitant]
     Dosage: 10 MG, UNK
     Route: 048
  2. ZOLOFT [Concomitant]
     Route: 048
  3. CYMBALTA [Concomitant]
     Dosage: UNK
     Route: 048
     Dates: start: 20090323
  4. FLUCONAZOLE [Concomitant]
     Dosage: UNK
     Route: 048
     Dates: start: 20090908
  5. DIAZEPAM [Concomitant]
     Dosage: 2 MG, BID
     Route: 048
  6. LEVOTHYROXINE [Concomitant]
     Indication: HYPOTHYROIDISM
     Dosage: UNK
     Dates: start: 20080101
  7. PHENERGAN [Concomitant]
     Indication: IRRITABLE BOWEL SYNDROME
     Dosage: UNK
     Route: 048
     Dates: start: 20091202
  8. YAZ [Suspect]
     Indication: ORAL CONTRACEPTION
     Dosage: UNK
     Route: 048
     Dates: start: 20080501, end: 20091201
  9. YAZ [Suspect]
     Indication: PREMENSTRUAL SYNDROME
  10. PROPRANOLOL [Concomitant]
     Route: 048
  11. DARVOCET-N 100 [Concomitant]
     Indication: HEADACHE
     Dosage: UNK UNK, QID
     Route: 048
  12. FIBERCON [Concomitant]
     Indication: IRRITABLE BOWEL SYNDROME
     Dosage: UNK
     Route: 048
     Dates: start: 20091202
  13. SYNTHROID [Concomitant]
     Dosage: 0.05 MG, UNK
     Route: 048
     Dates: start: 20090101

REACTIONS (7)
  - DIARRHOEA [None]
  - PELVIC PAIN [None]
  - ABDOMINAL PAIN UPPER [None]
  - VOMITING [None]
  - CHOLECYSTITIS CHRONIC [None]
  - HEADACHE [None]
  - NAUSEA [None]
